FAERS Safety Report 4914171-1 (Version None)
Quarter: 2006Q1

REPORT INFORMATION
  Report Type: 
  Country: None (occurrence: None)
  Receive Date: 20060210
  Receipt Date: 20000523
  Transmission Date: 20060701
  Serious: Yes (Congenital Anomaly)
  Sender: FDA-Public Use
  Company Number: A0589932A

PATIENT
  Sex: 0

DRUGS (4)
  1. LAMICTAL [Suspect]
     Dosage: SEE DOSAGE TEXT / TRANSPLAC
     Route: 064
  2. TOBACCO [Concomitant]
  3. PRENATAL VITAMINS [Concomitant]
  4. FOLIC ACID [Concomitant]

REACTIONS (3)
  - DRUG EXPOSURE DURING PREGNANCY [None]
  - INGUINAL HERNIA [None]
  - NEONATAL DISORDER [None]
